FAERS Safety Report 6116848-1 (Version None)
Quarter: 2009Q1

REPORT INFORMATION
  Report Type: 
  Country: None (occurrence: None)
  Receive Date: 20090314
  Receipt Date: 20090102
  Transmission Date: 20090719
  Serious: No
  Sender: FDA-Public Use
  Company Number: US-ABBOTT-08P-163-0495093-00

PATIENT
  Sex: Male
  Weight: 108.96 kg

DRUGS (17)
  1. HUMIRA [Suspect]
     Indication: RHEUMATOID ARTHRITIS
     Dates: start: 20081001, end: 20081101
  2. HUMIRA [Suspect]
     Dates: start: 20081101
  3. SENA LAXATIVE [Concomitant]
     Indication: LAXATIVE SUPPORTIVE CARE
  4. CELEBREX [Concomitant]
     Indication: PAIN
     Dates: start: 20030101
  5. ADDERALL 10 [Concomitant]
     Indication: ATTENTION DEFICIT/HYPERACTIVITY DISORDER
     Dates: start: 20080901
  6. LISINOPRIL [Concomitant]
     Indication: BLOOD PRESSURE
     Dates: start: 20000101
  7. OXYCONDONE [Concomitant]
     Indication: PAIN
     Dates: start: 20080801
  8. ACTOS [Concomitant]
     Indication: DIABETES MELLITUS
     Dates: start: 20000101
  9. EFFECTOR XR [Concomitant]
     Indication: DRUG USE FOR UNKNOWN INDICATION
     Dates: start: 20040101
  10. LIPITOR [Concomitant]
     Indication: BLOOD CHOLESTEROL
     Dates: start: 20020101
  11. ORPHENADRINE CITRATE [Concomitant]
     Indication: MUSCLE RELAXANT THERAPY
     Dates: start: 20081001
  12. METFORMIN HCL [Concomitant]
     Indication: DIABETES MELLITUS
     Dates: start: 20000101
  13. STARLIX [Concomitant]
     Indication: DIABETES MELLITUS
     Dates: start: 20080101
  14. BETA INSULIN PEN [Concomitant]
     Indication: DIABETES MELLITUS
     Dates: start: 20030101
  15. XANAX [Concomitant]
     Indication: DRUG USE FOR UNKNOWN INDICATION
     Dates: start: 20060101
  16. PERCOCET [Concomitant]
     Indication: PAIN
  17. LIDODERM [Concomitant]
     Indication: PAIN
     Dosage: PATCH
     Route: 061

REACTIONS (4)
  - ARTHRALGIA [None]
  - ASTHENIA [None]
  - DRY THROAT [None]
  - SOMNOLENCE [None]
